FAERS Safety Report 7516985-0 (Version None)
Quarter: 2011Q2

REPORT INFORMATION
  Report Type: 
  Country: None (occurrence: None)
  Receive Date: 20110502
  Receipt Date: 20110217
  Transmission Date: 20111010
  Serious: Yes (Hospitalization, Other)
  Sender: FDA-Public Use
  Company Number: AMAG201100059

PATIENT
  Age: 52 Year

DRUGS (1)
  1. FERAHEME [Suspect]
     Indication: ANAEMIA
     Dosage: 12 ML, SINGLE, INTRAVENOUS
     Route: 042
     Dates: start: 20100922, end: 20100922

REACTIONS (6)
  - HYPOTENSION [None]
  - RESTLESSNESS [None]
  - VOMITING [None]
  - DYSPNOEA [None]
  - UNRESPONSIVE TO STIMULI [None]
  - HYPERTENSION [None]
